FAERS Safety Report 19211796 (Version 2)
Quarter: 2021Q2

REPORT INFORMATION
  Report Type: Spontaneous
  Country: US (occurrence: US)
  Receive Date: 20210504
  Receipt Date: 20210513
  Transmission Date: 20210717
  Serious: Yes (Hospitalization, Other)
  Sender: FDA-Public Use
  Company Number: US-ASTELLAS-2021US015717

PATIENT
  Age: 72 Year
  Sex: Male
  Weight: 115 kg

DRUGS (3)
  1. PADCEV [Suspect]
     Active Substance: ENFORTUMAB VEDOTIN-EJFV
     Dosage: 1 MG/KG (114 MG), CYCLIC
     Route: 065
  2. PADCEV [Suspect]
     Active Substance: ENFORTUMAB VEDOTIN-EJFV
     Indication: TRANSITIONAL CELL CARCINOMA
     Dosage: 1.25 MG/KG (125 MG), CYCLIC
     Route: 065
     Dates: start: 20191105
  3. PADCEV [Suspect]
     Active Substance: ENFORTUMAB VEDOTIN-EJFV
     Dosage: 0.75 MG/KG (80 MG) CYCLIC
     Route: 065

REACTIONS (9)
  - Acute kidney injury [Recovering/Resolving]
  - Blood phosphorus abnormal [Recovering/Resolving]
  - Nausea [Recovering/Resolving]
  - Decreased appetite [Recovering/Resolving]
  - Hypotension [Recovering/Resolving]
  - Alanine aminotransferase increased [Recovered/Resolved]
  - Dizziness [Recovering/Resolving]
  - Aspartate aminotransferase increased [Recovered/Resolved]
  - Diarrhoea [Recovering/Resolving]

NARRATIVE: CASE EVENT DATE: 20191202
